FAERS Safety Report 4645224-3 (Version None)
Quarter: 2005Q2

REPORT INFORMATION
  Report Type: 
  Country: None (occurrence: None)
  Receive Date: 20050426
  Receipt Date: 20050318
  Transmission Date: 20051028
  Serious: Yes (Other)
  Sender: FDA-Public Use
  Company Number: NL-GLAXOSMITHKLINE-B0375889A

PATIENT
  Age: 68 Year
  Sex: Female

DRUGS (2)
  1. FLUTICASONE PROPIONATE + SALMETEROL XINAFOATE [Suspect]
     Indication: BRONCHITIS
     Dosage: 1PUFF TWICE PER DAY
     Route: 055
     Dates: start: 20020101
  2. NO CONCURRENT MEDICATION [Concomitant]

REACTIONS (3)
  - INTRAOCULAR PRESSURE INCREASED [None]
  - MACULAR DEGENERATION [None]
  - VISUAL ACUITY REDUCED [None]
